APPROVED DRUG PRODUCT: KANTREX
Active Ingredient: KANAMYCIN SULFATE
Strength: EQ 500MG BASE/2ML
Dosage Form/Route: INJECTABLE;INJECTION
Application: A062564 | Product #002
Applicant: APOTHECON INC DIV BRISTOL MYERS SQUIBB
Approved: Sep 21, 1984 | RLD: No | RS: No | Type: DISCN